FAERS Safety Report 19405217 (Version 2)
Quarter: 2021Q3

REPORT INFORMATION
  Report Type: Spontaneous
  Country: JP (occurrence: JP)
  Receive Date: 20210611
  Receipt Date: 20210806
  Transmission Date: 20211014
  Serious: Yes (Hospitalization, Other)
  Sender: FDA-Public Use
  Company Number: JP-MACLEODS PHARMACEUTICALS US LTD-MAC2021031412

PATIENT

DRUGS (1)
  1. ACYCLOVIR. [Suspect]
     Active Substance: ACYCLOVIR
     Indication: ORAL HERPES
     Dosage: 1000 MILLIGRAM, QD, (ZOVIRAX) (200 MG TABLETS X 5 TIMES/DAY), INFUSION THERAPY)
     Route: 048

REACTIONS (4)
  - Irritability [Recovered/Resolved]
  - Transient psychosis [Recovering/Resolving]
  - Neurotoxicity [Recovering/Resolving]
  - Delirium [Recovered/Resolved]
